FAERS Safety Report 8127913-1 (Version None)
Quarter: 2011Q4

REPORT INFORMATION
  Report Type: 
  Country: None (occurrence: None)
  Receive Date: 20111230
  Receipt Date: 20110715
  Transmission Date: 20120403
  Serious: Yes (Other)
  Sender: FDA-Public Use
  Company Number: 290625USA

PATIENT
  Sex: Female

DRUGS (2)
  1. AZITHROMYCIN [Suspect]
     Dosage: (500 MG)
  2. FLUCONAZOLE [Concomitant]

REACTIONS (4)
  - PAIN [None]
  - DIARRHOEA [None]
  - PHARYNGEAL OEDEMA [None]
  - RASH [None]
